FAERS Safety Report 5898421-3 (Version None)
Quarter: 2008Q3

REPORT INFORMATION
  Report Type: 
  Country: None (occurrence: None)
  Receive Date: 20080925
  Receipt Date: 20071030
  Transmission Date: 20090109
  Serious: No
  Sender: FDA-Public Use
  Company Number: A0690542A

PATIENT
  Age: 5 Month

DRUGS (3)
  1. WELLBUTRIN XL [Suspect]
     Indication: POSTPARTUM DEPRESSION
     Dosage: 300MG THREE TIMES PER DAY
     Route: 048
     Dates: start: 20060101, end: 20070101
  2. WELLBUTRIN [Suspect]
     Indication: POSTPARTUM DEPRESSION
     Dosage: 300MG TWICE PER DAY
     Route: 048
     Dates: start: 20070301
  3. NO CONCURRENT MEDICATION [Concomitant]

REACTIONS (1)
  - DRUG EXPOSURE VIA BREAST MILK [None]
